FAERS Safety Report 9776520 (Version 2)
Quarter: 2014Q1

REPORT INFORMATION
  Report Type: Spontaneous
  Country: US (occurrence: US)
  Receive Date: 20131220
  Receipt Date: 20140307
  Transmission Date: 20141002
  Serious: No
  Sender: FDA-Public Use
  Company Number: US-GILEAD-2013-0090296

PATIENT
  Sex: Female

DRUGS (3)
  1. LETAIRIS [Suspect]
     Indication: PULMONARY ARTERIAL HYPERTENSION
     Dosage: 10 MG, QD
     Route: 048
     Dates: start: 20120712
  2. REVATIO [Concomitant]
  3. TARCEVA [Concomitant]
     Indication: NEOPLASM MALIGNANT

REACTIONS (4)
  - Epistaxis [Unknown]
  - Upper respiratory tract congestion [Unknown]
  - Increased upper airway secretion [Unknown]
  - Hot flush [Unknown]
